FAERS Safety Report 5589431-4 (Version None)
Quarter: 2008Q1

REPORT INFORMATION
  Report Type: 
  Country: None (occurrence: None)
  Receive Date: 20080109
  Receipt Date: 20080109
  Transmission Date: 20080703
  Serious: Yes (Other)
  Sender: FDA-Public Use
  Company Number: None

PATIENT
  Age: 73 Year
  Sex: Male
  Weight: 108.8633 kg

DRUGS (2)
  1. LIPITOR [Suspect]
     Indication: BLOOD CHOLESTEROL
     Dosage: 10MG DAILY -CHANGED TO PO 10 MG EVERY OTHER DAY PO
     Route: 048
     Dates: start: 20050501, end: 20070601
  2. LIPITOR [Suspect]
     Indication: BLOOD CHOLESTEROL
     Dosage: 10MG DAILY -CHANGED TO PO 10 MG EVERY OTHER DAY PO
     Route: 048
     Dates: start: 20070601, end: 20070901

REACTIONS (3)
  - INSOMNIA [None]
  - PAIN [None]
  - PAIN IN EXTREMITY [None]
